FAERS Safety Report 20058740 (Version 1)
Quarter: 2021Q4

REPORT INFORMATION
  Report Type: Spontaneous
  Country: US (occurrence: None)
  Receive Date: 20211111
  Receipt Date: 20211111
  Transmission Date: 20220303
  Serious: Yes (Hospitalization)
  Sender: FDA-Public Use
  Company Number: None

PATIENT
  Sex: Female
  Weight: 69.7 kg

DRUGS (1)
  1. ASPIRIN [Suspect]
     Active Substance: ASPIRIN

REACTIONS (7)
  - Headache [None]
  - Lethargy [None]
  - Confusional state [None]
  - Nausea [None]
  - Vomiting [None]
  - Sinusitis [None]
  - Pituitary cyst [None]

NARRATIVE: CASE EVENT DATE: 20211023
